FAERS Safety Report 7908611-3 (Version None)
Quarter: 2011Q4

REPORT INFORMATION
  Report Type: 
  Country: None (occurrence: None)
  Receive Date: 20111111
  Receipt Date: 20111110
  Transmission Date: 20120403
  Serious: Yes (Other)
  Sender: FDA-Public Use
  Company Number: PT-PFIZER INC-2011275163

PATIENT
  Age: 19 Year
  Sex: Female

DRUGS (6)
  1. BUDESONIDE/FORMOTEROL FUMARATE [Concomitant]
     Dosage: UNK
  2. ZYRTEC [Concomitant]
     Dosage: UNK
  3. MEDROL [Suspect]
     Indication: BRONCHIAL DISORDER
     Dosage: UNK
     Route: 048
     Dates: start: 20110301
  4. DESLORATADINE [Concomitant]
     Dosage: UNK
  5. SINGULAIR [Concomitant]
     Dosage: UNK
  6. FLUTICASONE FUROATE [Concomitant]
     Dosage: UNK
     Route: 045

REACTIONS (5)
  - EYELID OEDEMA [None]
  - DYSPNOEA [None]
  - CONDITION AGGRAVATED [None]
  - URTICARIA [None]
  - FACE OEDEMA [None]
